FAERS Safety Report 6529605-9 (Version None)
Quarter: 2010Q1

REPORT INFORMATION
  Report Type: 
  Country: None (occurrence: None)
  Receive Date: 20100107
  Receipt Date: 20100104
  Transmission Date: 20100710
  Serious: Yes (Death, Hospitalization)
  Sender: FDA-Public Use
  Company Number: SA-ASTRAZENECA-2010SE00204

PATIENT
  Age: 33 Year
  Sex: Female

DRUGS (2)
  1. ESOMEPRAZOLE SODIUM (NEXIUM) [Suspect]
     Route: 042
  2. ROCURONIUM BROMIDE [Suspect]
     Route: 042

REACTIONS (5)
  - BRONCHOSPASM [None]
  - DRUG LABEL CONFUSION [None]
  - HAEMODYNAMIC INSTABILITY [None]
  - OVERDOSE [None]
  - RESPIRATORY PARALYSIS [None]
